FAERS Safety Report 23384179 (Version 3)
Quarter: 2024Q1

REPORT INFORMATION
  Report Type: Spontaneous
  Country: GB (occurrence: GB)
  Receive Date: 20240109
  Receipt Date: 20240116
  Transmission Date: 20240409
  Serious: Yes (Disabling, Other)
  Sender: FDA-Public Use
  Company Number: GB-ORGANON-O2401GBR000526

PATIENT
  Age: 26 Year
  Sex: Male

DRUGS (2)
  1. ELOCON [Suspect]
     Active Substance: MOMETASONE FUROATE
     Indication: Eczema
     Dosage: 30 GRAM TUBE
     Route: 061
  2. ELOCON [Suspect]
     Active Substance: MOMETASONE FUROATE
     Dosage: 30 G, UNK
     Route: 061

REACTIONS (2)
  - Medication error [Unknown]
  - Topical steroid withdrawal reaction [Not Recovered/Not Resolved]
